FAERS Safety Report 22098014 (Version 1)
Quarter: 2023Q1

REPORT INFORMATION
  Report Type: Spontaneous
  Country: US (occurrence: None)
  Receive Date: 20230314
  Receipt Date: 20230314
  Transmission Date: 20230418
  Serious: Yes (Hospitalization)
  Sender: FDA-Public Use
  Company Number: None

PATIENT
  Age: 46 Year
  Sex: Female
  Weight: 107.7 kg

DRUGS (2)
  1. CEFTRIAXONE [Suspect]
     Active Substance: CEFTRIAXONE
     Indication: Abdominal infection
     Dosage: FREQUENCY : DAILY;?
     Route: 040
     Dates: start: 20230131, end: 20230226
  2. DAPTOMYCIN [Concomitant]
     Active Substance: DAPTOMYCIN
     Dates: start: 20230131, end: 20230226

REACTIONS (6)
  - Disease complication [None]
  - COVID-19 [None]
  - Diarrhoea [None]
  - Abdominal pain upper [None]
  - Liver function test increased [None]
  - Device occlusion [None]

NARRATIVE: CASE EVENT DATE: 20230225
